FAERS Safety Report 13567145 (Version 2)
Quarter: 2018Q2

REPORT INFORMATION
  Report Type: Spontaneous
  Country: US (occurrence: US)
  Receive Date: 20170522
  Receipt Date: 20180525
  Transmission Date: 20180711
  Serious: No
  Sender: FDA-Public Use
  Company Number: US-TEVA-762002USA

PATIENT
  Sex: Male

DRUGS (9)
  1. LOSARTAN. [Concomitant]
     Active Substance: LOSARTAN
     Dosage: 100 MILLIGRAM DAILY;
  2. SIMVASTATIN. [Concomitant]
     Active Substance: SIMVASTATIN
     Dosage: 1/2 A DAY
  3. CLONIDINE. [Suspect]
     Active Substance: CLONIDINE
     Indication: HYPERTENSION
     Dosage: 0.1 MG/DAY; CHANGE EVERY FRIDAY
     Route: 065
     Dates: start: 20170112, end: 20170405
  4. FLUOXETINE [Concomitant]
     Active Substance: FLUOXETINE HYDROCHLORIDE
     Dosage: 10 MILLIGRAM DAILY;
  5. CLONIDINE. [Suspect]
     Active Substance: CLONIDINE
     Dosage: ONE EVERY 12 HOURS
     Dates: end: 20160524
  6. AMLODIPINE BESILATE [Concomitant]
     Active Substance: AMLODIPINE BESYLATE
     Dosage: 1/2 TAB FOR 3 DAYS THEN ONE A DAY
  7. CLOPIDOGREL [Concomitant]
     Active Substance: CLOPIDOGREL BISULFATE
     Dosage: 75 MILLIGRAM DAILY;
  8. SIMVASTATIN. [Concomitant]
     Active Substance: SIMVASTATIN
     Dosage: 20 MILLIGRAM DAILY;
  9. CLONIDINE. [Concomitant]
     Active Substance: CLONIDINE
     Dosage: .2 MILLIGRAM DAILY;

REACTIONS (5)
  - Pruritus [Not Recovered/Not Resolved]
  - Wound [Unknown]
  - Rash [Recovering/Resolving]
  - Skin burning sensation [Recovering/Resolving]
  - Dermatitis contact [Recovered/Resolved]
